FAERS Safety Report 4975535-3 (Version None)
Quarter: 2006Q2

REPORT INFORMATION
  Report Type: 
  Country: None (occurrence: None)
  Receive Date: 20060410
  Receipt Date: 20060328
  Transmission Date: 20061013
  Serious: Yes (Hospitalization)
  Sender: FDA-Public Use
  Company Number: 2006-140478-NL

PATIENT
  Age: 45 Year
  Sex: Female

DRUGS (5)
  1. MIRTAZAPINE [Suspect]
     Dosage: DF
  2. VALPROATE SODIUM [Suspect]
  3. COMBIVIR [Concomitant]
  4. NEVIRAPINE [Concomitant]
  5. VALACYCLOVIR HCL [Concomitant]

REACTIONS (4)
  - FATIGUE [None]
  - LETHARGY [None]
  - MALAISE [None]
  - PANCYTOPENIA [None]
